FAERS Safety Report 4496132-2 (Version None)
Quarter: 2004Q4

REPORT INFORMATION
  Report Type: 
  Country: None (occurrence: None)
  Receive Date: 20041108
  Receipt Date: 20041101
  Transmission Date: 20050328
  Serious: Yes (Disabling, Other)
  Sender: FDA-Public Use
  Company Number: US-MERCK-0411USA00326

PATIENT
  Sex: Male

DRUGS (1)
  1. VIOXX [Suspect]
     Route: 048

REACTIONS (18)
  - BLOOD PRESSURE INCREASED [None]
  - CARDIAC PROCEDURE COMPLICATION [None]
  - CAROTID ARTERY DISEASE [None]
  - CHILLS [None]
  - DEAFNESS [None]
  - DEPRESSION [None]
  - HEART RATE INCREASED [None]
  - LOSS OF LIBIDO [None]
  - LUNG INFECTION [None]
  - LUNG INJURY [None]
  - MYOCARDIAL INFARCTION [None]
  - OEDEMA PERIPHERAL [None]
  - PAIN [None]
  - PERIPHERAL VASCULAR DISORDER [None]
  - PYREXIA [None]
  - RASH [None]
  - SEXUAL DYSFUNCTION [None]
  - VISUAL DISTURBANCE [None]
